FAERS Safety Report 6239493-6 (Version None)
Quarter: 2009Q2

REPORT INFORMATION
  Report Type: 
  Country: None (occurrence: None)
  Receive Date: 20090622
  Receipt Date: 20090616
  Transmission Date: 20091009
  Serious: Yes (Other)
  Sender: FDA-Public Use
  Company Number: AU-AVENTIS-200916155GDDC

PATIENT
  Age: 55 Year
  Sex: Female

DRUGS (6)
  1. ARAVA [Suspect]
     Indication: RHEUMATOID ARTHRITIS
     Dates: start: 20060526
  2. METHOTREXATE [Concomitant]
     Dates: start: 20090610
  3. PANADEINE                          /00116401/ [Concomitant]
     Dosage: DOSE: UNK
  4. CORTISONE INJECTIONS [Concomitant]
     Dosage: DOSE: UNK
  5. ENDEP [Concomitant]
     Dosage: DOSE: UNK
  6. MOVALIS [Concomitant]
     Dosage: DOSE: UNK

REACTIONS (3)
  - GAIT DISTURBANCE [None]
  - MORTON'S NEUROMA [None]
  - RHEUMATOID ARTHRITIS [None]
